FAERS Safety Report 9787648 (Version 1)
Quarter: 2013Q4

REPORT INFORMATION
  Report Type: Spontaneous
  Country: US (occurrence: None)
  Receive Date: 20131226
  Receipt Date: 20131226
  Transmission Date: 20140711
  Serious: Yes (Hospitalization, Other)
  Sender: FDA-Public Use
  Company Number: 2013-US-004635

PATIENT
  Age: 73 Year
  Sex: Male
  Weight: 68.04 kg

DRUGS (12)
  1. XYREM (SODIUM OXYBATE) ORAL SOLUTION, 500MG/ML [Suspect]
     Indication: NARCOLEPSY
     Route: 048
     Dates: start: 201308, end: 2013
  2. XYREM (SODIUM OXYBATE) ORAL SOLUTION, 500MG/ML [Suspect]
     Indication: CATAPLEXY
     Route: 048
     Dates: start: 201308, end: 2013
  3. LEVAQUIN (LEVOFLOXACIN) [Suspect]
     Indication: PROSTATE INFECTION
     Dates: start: 201310
  4. SERTRALINE (SERTRALINE HYDROCHLORIDE) [Concomitant]
  5. NUVIGIL (ARMODAFINIL) [Concomitant]
  6. LEVEMIR (INSULIN DETEMIR) [Concomitant]
  7. ACTOS (PIOGLITAZONE HYDROCHLORIDE) [Concomitant]
  8. VYTORIN (EZETIMIBE, SIMVASTATIN) [Concomitant]
  9. FISH OIL (FISH OIL) [Concomitant]
  10. TESTOSTERONE (TESTOSTERONE) [Concomitant]
  11. VITAMIN B12 (CYANOCOBALAMIN) [Concomitant]
  12. VITAMIN D (ERGOCALCIFEROL) [Concomitant]

REACTIONS (6)
  - Toxicity to various agents [None]
  - Brain oedema [None]
  - Prostate infection [None]
  - Moaning [None]
  - Snoring [None]
  - Confusional state [None]
